FAERS Safety Report 13457266 (Version 1)
Quarter: 2017Q2

REPORT INFORMATION
  Report Type: Spontaneous
  Country: US (occurrence: US)
  Receive Date: 20170418
  Receipt Date: 20170418
  Transmission Date: 20170830
  Serious: Yes (Disabling)
  Sender: FDA-Public Use
  Company Number: None

PATIENT
  Age: 49 Year
  Sex: Female
  Weight: 58.5 kg

DRUGS (4)
  1. NATURAL SUPPLEMENTS [Concomitant]
  2. GENERIC EFFEXOR [Concomitant]
     Active Substance: VENLAFAXINE HYDROCHLORIDE
  3. TRANSDERM SCOP [Suspect]
     Active Substance: SCOPOLAMINE
     Indication: MOTION SICKNESS
     Dosage: ?          QUANTITY:4 PATCH(ES);OTHER FREQUENCY:1 EVERY 72 HOURS;?
     Route: 061
     Dates: start: 20170327, end: 20170403
  4. PLEXUS [Concomitant]

REACTIONS (16)
  - Headache [None]
  - Nausea [None]
  - Chills [None]
  - Vomiting [None]
  - Decreased appetite [None]
  - Photophobia [None]
  - Vision blurred [None]
  - Dizziness [None]
  - Pupils unequal [None]
  - Dysgeusia [None]
  - Insomnia [None]
  - Hot flush [None]
  - Cold sweat [None]
  - Fatigue [None]
  - Dyspepsia [None]
  - Dysphonia [None]

NARRATIVE: CASE EVENT DATE: 20170404
